FAERS Safety Report 10902825 (Version 1)
Quarter: 2015Q1

REPORT INFORMATION
  Report Type: Report from Study
  Country: US (occurrence: US)
  Receive Date: 20150310
  Receipt Date: 20150310
  Transmission Date: 20150721
  Serious: Yes (Hospitalization)
  Sender: FDA-Public Use
  Company Number: US-ACTELION-A-US2015-114102

PATIENT
  Age: 61 Year
  Sex: Female

DRUGS (1)
  1. TRACLEER [Suspect]
     Active Substance: BOSENTAN\BOSENTAN MONOHYDRATE
     Indication: PRODUCT USED FOR UNKNOWN INDICATION
     Dosage: UNK
     Route: 048
     Dates: start: 20090825

REACTIONS (2)
  - Headache [Unknown]
  - Infection [Unknown]

NARRATIVE: CASE EVENT DATE: 20150209
